FAERS Safety Report 8603076-0 (Version None)
Quarter: 2012Q3

REPORT INFORMATION
  Report Type: 
  Country: None (occurrence: None)
  Receive Date: 20120817
  Receipt Date: 20120803
  Transmission Date: 20120928
  Serious: Yes (Hospitalization, Other)
  Sender: FDA-Public Use
  Company Number: US-ROCHE-1098012

PATIENT
  Sex: Female

DRUGS (5)
  1. TYKERB [Concomitant]
  2. CARBOPLATIN [Concomitant]
     Indication: BREAST CANCER
  3. TAXOTERE [Concomitant]
     Indication: BREAST CANCER
  4. HERCEPTIN [Suspect]
     Indication: BREAST CANCER
     Route: 065
     Dates: start: 20060801
  5. PERJETA [Suspect]
     Indication: BREAST CANCER
     Route: 065

REACTIONS (8)
  - PULMONARY OEDEMA [None]
  - PRURITUS [None]
  - MALAISE [None]
  - BREAST PAIN [None]
  - FEELING COLD [None]
  - LACRIMATION INCREASED [None]
  - INFUSION RELATED REACTION [None]
  - DRUG INEFFECTIVE [None]
